FAERS Safety Report 22294530 (Version 1)
Quarter: 2023Q2

REPORT INFORMATION
  Report Type: Spontaneous
  Country: US (occurrence: US)
  Receive Date: 20230508
  Receipt Date: 20230508
  Transmission Date: 20230722
  Serious: Yes (Other)
  Sender: FDA-Public Use
  Company Number: US-ASTELLAS-2022US044307

PATIENT
  Age: 78 Year
  Sex: Male

DRUGS (4)
  1. LEXISCAN [Suspect]
     Active Substance: REGADENOSON
     Indication: Product used for unknown indication
     Dosage: UNK UNK, OTHER (ONE DOSE FOR STRESS TEST)
     Route: 065
     Dates: start: 20221212, end: 20221212
  2. LEXISCAN [Suspect]
     Active Substance: REGADENOSON
     Indication: Product used for unknown indication
     Dosage: UNK UNK, OTHER (ONE DOSE FOR STRESS TEST)
     Route: 065
     Dates: start: 20221212, end: 20221212
  3. LEXISCAN [Suspect]
     Active Substance: REGADENOSON
     Indication: Product used for unknown indication
     Dosage: UNK UNK, OTHER (ONE DOSE FOR STRESS TEST)
     Route: 065
     Dates: start: 20221212, end: 20221212
  4. LEXISCAN [Suspect]
     Active Substance: REGADENOSON
     Indication: Product used for unknown indication
     Dosage: UNK UNK, OTHER (ONE DOSE FOR STRESS TEST)
     Route: 065
     Dates: start: 20221212, end: 20221212

REACTIONS (4)
  - Loss of consciousness [Recovered/Resolved]
  - Nausea [Recovered/Resolved]
  - Dizziness [Recovered/Resolved]
  - Dyspnoea [Recovered/Resolved]

NARRATIVE: CASE EVENT DATE: 20221212
